FAERS Safety Report 15899073 (Version 4)
Quarter: 2019Q2

REPORT INFORMATION
  Report Type: Spontaneous
  Country: US (occurrence: US)
  Receive Date: 20190201
  Receipt Date: 20190411
  Transmission Date: 20190711
  Serious: Yes (Hospitalization, Other)
  Sender: FDA-Public Use
  Company Number: US-GLAXOSMITHKLINE-US2019015783

PATIENT
  Age: 72 Year
  Sex: Female
  Weight: 52 kg

DRUGS (13)
  1. CETIRIZINE [Suspect]
     Active Substance: CETIRIZINE HYDROCHLORIDE
  2. LISINOPRIL. [Suspect]
     Active Substance: LISINOPRIL
  3. CHOLECALCIFEROL + CALCIUM CARBONATE [Suspect]
     Active Substance: CALCIUM CARBONATE\CHOLECALCIFEROL
     Dosage: 5000 IU, QD
  4. KEPPRA [Suspect]
     Active Substance: LEVETIRACETAM
  5. THIAMINE. [Suspect]
     Active Substance: THIAMINE
  6. ATORVASTATINE [Suspect]
     Active Substance: ATORVASTATIN
  7. ANORO ELLIPTA [Suspect]
     Active Substance: UMECLIDINIUM BROMIDE\VILANTEROL TRIFENATATE
     Indication: CHRONIC OBSTRUCTIVE PULMONARY DISEASE
     Dosage: 1 PUFF(S), QD
     Route: 055
     Dates: start: 20170504
  8. DOXYCYCLINE. [Suspect]
     Active Substance: DOXYCYCLINE
  9. PROVENTIL [Suspect]
     Active Substance: ALBUTEROL
  10. PREDNISONE. [Suspect]
     Active Substance: PREDNISONE
  11. LEVOTHYROXINE. [Suspect]
     Active Substance: LEVOTHYROXINE
  12. ASPIRIN + CAFFEINE + SALICYLAMIDE [Suspect]
     Active Substance: ASPIRIN\CAFFEINE\SALICYLAMIDE
     Dosage: 81 MG, QD
     Route: 048
  13. QUETIAPINE. [Suspect]
     Active Substance: QUETIAPINE

REACTIONS (13)
  - Fall [Unknown]
  - Therapeutic product effect decreased [Unknown]
  - Treatment noncompliance [Unknown]
  - Pain [Unknown]
  - Anal incontinence [Unknown]
  - Impaired driving ability [Unknown]
  - Gait disturbance [Unknown]
  - Loss of consciousness [Unknown]
  - Hip fracture [Unknown]
  - Osteoporosis [Unknown]
  - Urinary incontinence [Unknown]
  - Dyspnoea [Unknown]
  - Fracture [Unknown]

NARRATIVE: CASE EVENT DATE: 201811
